FAERS Safety Report 12816970 (Version 1)
Quarter: 2016Q4

REPORT INFORMATION
  Report Type: Spontaneous
  Country: US (occurrence: US)
  Receive Date: 20161005
  Receipt Date: 20161005
  Transmission Date: 20170207
  Serious: Yes (Other)
  Sender: FDA-Public Use
  Company Number: None

PATIENT
  Age: 5 Month
  Sex: Female
  Weight: 99 kg

DRUGS (1)
  1. HYOSCYAMINE SULFATE 0.125 [Suspect]
     Active Substance: HYOSCYAMINE SULFATE
     Indication: ABDOMINAL PAIN UPPER
     Dosage: ?          QUANTITY:30 TABLET(S);OTHER ROUTE:ORAL?
     Route: 048
     Dates: start: 20160913, end: 20160915

REACTIONS (1)
  - Dysuria [None]

NARRATIVE: CASE EVENT DATE: 20160915
